FAERS Safety Report 6219041-7 (Version None)
Quarter: 2009Q2

REPORT INFORMATION
  Report Type: 
  Country: None (occurrence: None)
  Receive Date: 20090608
  Receipt Date: 20090527
  Transmission Date: 20091009
  Serious: Yes (Other)
  Sender: FDA-Public Use
  Company Number: JP-PFIZER INC-2009220206

PATIENT
  Age: 54 Year

DRUGS (2)
  1. SOLU-MEDROL [Suspect]
     Route: 042
     Dates: start: 20070101
  2. DENOSINE ^TANABE^ [Concomitant]
     Dates: start: 20071112, end: 20080101

REACTIONS (3)
  - CATARACT [None]
  - CYTOMEGALOVIRUS CHORIORETINITIS [None]
  - HEPATIC FUNCTION ABNORMAL [None]
